FAERS Safety Report 10862250 (Version 2)
Quarter: 2015Q1

REPORT INFORMATION
  Report Type: Spontaneous
  Country: US (occurrence: US)
  Receive Date: 20150224
  Receipt Date: 20150310
  Transmission Date: 20150721
  Serious: Yes (Other)
  Sender: FDA-Public Use
  Company Number: US-PFIZER INC-2015068201

PATIENT
  Age: 19 Year
  Sex: Male

DRUGS (4)
  1. WARFARIN [Concomitant]
     Active Substance: WARFARIN
     Dosage: UNK
  2. RETEPLASE [Suspect]
     Active Substance: RETEPLASE
     Indication: ISCHAEMIC STROKE
     Dosage: 9 MG, UNK
     Route: 013
  3. ARGATROBAN. [Suspect]
     Active Substance: ARGATROBAN
     Indication: ISCHAEMIC STROKE
     Dosage: 2 UG/KG/MIN
     Route: 042
  4. ACTILYSE [Suspect]
     Active Substance: ALTEPLASE
     Indication: ISCHAEMIC STROKE
     Dosage: UNK
     Route: 042

REACTIONS (2)
  - Drug ineffective [Recovering/Resolving]
  - Basal ganglia infarction [Recovering/Resolving]
